FAERS Safety Report 10167586 (Version 1)
Quarter: 2014Q2

REPORT INFORMATION
  Report Type: Spontaneous
  Country: US (occurrence: US)
  Receive Date: 20140512
  Receipt Date: 20140512
  Transmission Date: 20141212
  Serious: No
  Sender: FDA-Public Use
  Company Number: US-PFIZER INC-2014123783

PATIENT
  Sex: 0

DRUGS (7)
  1. CALAN [Suspect]
     Dosage: UNK
  2. VERAPAMIL HCL [Suspect]
     Dosage: UNK
  3. CODEINE [Suspect]
     Dosage: UNK
  4. AUGMENTIN [Suspect]
     Dosage: UNK
  5. PHENERGAN [Concomitant]
     Dosage: 25 MG, 4X/DAY (EVERY 6 HOURS)
  6. STADOL NS [Concomitant]
     Dosage: 10 MG/ML, 4X/DAY
  7. FIORICET [Concomitant]
     Dosage: 325 MG, 4X/DAY (1-2 TAB EVERY 6 HOURS)

REACTIONS (2)
  - Drug hypersensitivity [Unknown]
  - Urticaria [Unknown]
